FAERS Safety Report 13682727 (Version 1)
Quarter: 2017Q2

REPORT INFORMATION
  Report Type: Spontaneous
  Country: US (occurrence: US)
  Receive Date: 20170623
  Receipt Date: 20170623
  Transmission Date: 20170830
  Serious: No
  Sender: FDA-Public Use
  Company Number: US-MALLINCKRODT-T201605710

PATIENT
  Age: 38 Year
  Sex: Female
  Weight: 103 kg

DRUGS (6)
  1. H.P. ACTHAR [Suspect]
     Active Substance: CORTICOTROPIN
     Indication: NEPHROTIC SYNDROME
  2. H.P. ACTHAR [Suspect]
     Active Substance: CORTICOTROPIN
     Indication: RENAL DISORDER
     Dosage: 80 UNITS TWICE WEEKLY (TUES + FRI)
     Route: 058
     Dates: start: 20160719, end: 20161129
  3. CARDIA [Concomitant]
     Active Substance: AJMALINE
  4. LOSARTAN. [Concomitant]
     Active Substance: LOSARTAN
  5. H.P. ACTHAR [Suspect]
     Active Substance: CORTICOTROPIN
     Indication: PROTEINURIA
     Dosage: 40 UNITS TWICE WEEKLY
     Route: 058
     Dates: start: 201606, end: 201607
  6. LIPITOR [Concomitant]
     Active Substance: ATORVASTATIN CALCIUM

REACTIONS (2)
  - Glycosylated haemoglobin increased [Not Recovered/Not Resolved]
  - Drug ineffective [Not Recovered/Not Resolved]

NARRATIVE: CASE EVENT DATE: 201607
